FAERS Safety Report 7072548-5 (Version None)
Quarter: 2010Q4

REPORT INFORMATION
  Report Type: 
  Country: None (occurrence: None)
  Receive Date: 20101029
  Receipt Date: 20100209
  Transmission Date: 20110411
  Serious: No
  Sender: FDA-Public Use
  Company Number: A0843761A

PATIENT
  Age: 52 Year
  Sex: Male

DRUGS (7)
  1. ADVAIR DISKUS 100/50 [Suspect]
     Indication: CHRONIC OBSTRUCTIVE PULMONARY DISEASE
     Dosage: 1PUFF TWICE PER DAY
     Route: 055
     Dates: start: 20080201
  2. SPIRIVA [Concomitant]
  3. TERAZOSIN HCL [Concomitant]
  4. METOPROLOL [Concomitant]
  5. POTASSIUM CHLORIDE [Concomitant]
  6. LASIX [Concomitant]
  7. NAPROXIN [Concomitant]

REACTIONS (2)
  - EYE PAIN [None]
  - VISION BLURRED [None]
